FAERS Safety Report 16777391 (Version 6)
Quarter: 2021Q1

REPORT INFORMATION
  Report Type: Report from Study
  Country: US (occurrence: US)
  Receive Date: 20190905
  Receipt Date: 20210106
  Transmission Date: 20210419
  Serious: No
  Sender: FDA-Public Use
  Company Number: PHEH2019US035985

PATIENT
  Age: 53 Year
  Sex: Female
  Weight: 64.4 kg

DRUGS (8)
  1. TREPROSTINIL. [Suspect]
     Active Substance: TREPROSTINIL
     Dosage: 75 NG/KG/MIN, CONT
     Route: 042
  2. AMBRISENTAN [Concomitant]
     Active Substance: AMBRISENTAN
     Indication: PRODUCT USED FOR UNKNOWN INDICATION
     Route: 065
  3. TREPROSTINIL. [Suspect]
     Active Substance: TREPROSTINIL
     Dosage: 75 NG/KG/MIN, CONT
     Route: 042
  4. TREPROSTINIL. [Suspect]
     Active Substance: TREPROSTINIL
     Dosage: 74 NG/KG/MIN
     Route: 042
  5. OPSUMIT [Concomitant]
     Active Substance: MACITENTAN
     Indication: PRODUCT USED FOR UNKNOWN INDICATION
     Dosage: UNK
     Route: 065
  6. TREPROSTINIL. [Suspect]
     Active Substance: TREPROSTINIL
     Indication: PULMONARY ARTERIAL HYPERTENSION
     Dosage: 66 NG/KG/MIN
     Route: 042
     Dates: start: 20190730
  7. ADCIRCA [Concomitant]
     Active Substance: TADALAFIL
     Indication: PULMONARY ARTERIAL HYPERTENSION
     Route: 065
  8. ELIQUIS [Concomitant]
     Active Substance: APIXABAN
     Indication: PRODUCT USED FOR UNKNOWN INDICATION
     Route: 065

REACTIONS (10)
  - Sinusitis [Unknown]
  - Pruritus [Unknown]
  - Malaise [Unknown]
  - Feeling abnormal [Unknown]
  - Infection [Unknown]
  - Fatigue [Unknown]
  - Catheter site haemorrhage [Unknown]
  - Nasal congestion [Unknown]
  - Infusion site discharge [Unknown]
  - Headache [Unknown]

NARRATIVE: CASE EVENT DATE: 20191025
